FAERS Safety Report 7049476-4 (Version None)
Quarter: 2010Q4

REPORT INFORMATION
  Report Type: 
  Country: None (occurrence: None)
  Receive Date: 20101007
  Receipt Date: 20100929
  Transmission Date: 20110411
  Serious: Yes (Hospitalization)
  Sender: FDA-Public Use
  Company Number: 1000015253

PATIENT
  Age: 62 Year
  Sex: Female

DRUGS (13)
  1. SAVELLA [Suspect]
     Indication: FIBROMYALGIA
     Dosage: 12.5 MG (12.5 MG, 1 IN 1 D), ORAL
     Route: 048
     Dates: start: 20100409, end: 20100409
  2. SAVELLA [Suspect]
     Indication: FIBROMYALGIA
     Dosage: 25 MG (12.5 MG, 2 IN 1 D), ORAL
     Route: 048
     Dates: start: 20100410, end: 20100410
  3. WELLBUTRIN (BUPROPION) (BUPROPION) [Concomitant]
  4. INSULIN (INSULIN) (INSULIN) [Concomitant]
  5. BENICAR (OLMESARTAN MEDOXOMIL) (OLEMESARTAN MEDOXOMIL) [Concomitant]
  6. GLYSET (MIGLITOL) (MIGLITOL) [Concomitant]
  7. CRESTOR [Concomitant]
  8. LANTUS (INSULIN GLARGINE) (INSULIN GLARGINE) [Concomitant]
  9. IBUPROFEN [Concomitant]
  10. VOLTAREN GEL (DICLOFENAC (DICLOFENAC) [Concomitant]
  11. COREG (CARVEDILOL) (CARVEDILOL) [Concomitant]
  12. ASA (ACETYLSALICYLIC ACID) (ACETYLSALICYLIC ACID) [Concomitant]
  13. FLECTOR (DICLOFENAC) (DICLOFENAC) [Concomitant]

REACTIONS (5)
  - INCOHERENT [None]
  - MEMORY IMPAIRMENT [None]
  - PARANOIA [None]
  - PSYCHOTIC DISORDER [None]
  - SUICIDAL IDEATION [None]
